FAERS Safety Report 7018184-8 (Version None)
Quarter: 2010Q3

REPORT INFORMATION
  Report Type: 
  Country: None (occurrence: None)
  Receive Date: 20100922
  Receipt Date: 20100914
  Transmission Date: 20110219
  Serious: Yes (Hospitalization)
  Sender: FDA-Public Use
  Company Number: 697170

PATIENT
  Age: 23 Year
  Sex: Female

DRUGS (3)
  1. METHOTREXATE [Suspect]
     Indication: STILL'S DISEASE ADULT ONSET
     Dosage: 20 MG/WEEK
     Dates: start: 20080201
  2. LEFLUNOMIDE [Suspect]
     Indication: STILL'S DISEASE ADULT ONSET
     Dosage: 20 MG MILLIGRAM(S), DAY
     Dates: start: 20081101
  3. FOLIC ACID [Concomitant]

REACTIONS (4)
  - CAESAREAN SECTION [None]
  - DRUG EXPOSURE DURING PREGNANCY [None]
  - PREMATURE RUPTURE OF MEMBRANES [None]
  - TREATMENT NONCOMPLIANCE [None]
